FAERS Safety Report 23661350 (Version 1)
Quarter: 2024Q1

REPORT INFORMATION
  Report Type: Spontaneous
  Country: US (occurrence: US)
  Receive Date: 20240322
  Receipt Date: 20240322
  Transmission Date: 20240409
  Serious: No
  Sender: FDA-Public Use
  Company Number: US-TEVA-VS-3146995

PATIENT
  Sex: Male

DRUGS (1)
  1. TASIMELTEON [Suspect]
     Active Substance: TASIMELTEON
     Indication: Smith-Magenis syndrome
     Route: 065

REACTIONS (1)
  - Product use in unapproved indication [Unknown]
